FAERS Safety Report 5103969-5 (Version None)
Quarter: 2006Q3

REPORT INFORMATION
  Report Type: 
  Country: None (occurrence: None)
  Receive Date: 20060911
  Receipt Date: 20060825
  Transmission Date: 20061208
  Serious: Yes (Hospitalization)
  Sender: FDA-Public Use
  Company Number: 2006EU002159

PATIENT
  Age: 62 Year
  Sex: Male

DRUGS (2)
  1. FK506             (TACROLIMUS) [Suspect]
     Indication: LIVER TRANSPLANT
     Dosage: 2 MG, D, ORAL; 4 MG D
     Route: 048
     Dates: start: 20040725, end: 20060725
  2. FK506             (TACROLIMUS) [Suspect]
     Indication: LIVER TRANSPLANT
     Dosage: 2 MG, D, ORAL; 4 MG D
     Route: 048
     Dates: start: 20050426

REACTIONS (1)
  - ANGIOSARCOMA [None]
